FAERS Safety Report 19717699 (Version 2)
Quarter: 2021Q3

REPORT INFORMATION
  Report Type: Spontaneous
  Country: DE (occurrence: DE)
  Receive Date: 20210818
  Receipt Date: 20210917
  Transmission Date: 20211014
  Serious: Yes (Hospitalization)
  Sender: FDA-Public Use
  Company Number: DE-NOVOPROD-838247

PATIENT
  Age: 54 Year
  Sex: Female

DRUGS (4)
  1. OZEMPIC [Suspect]
     Active Substance: SEMAGLUTIDE
     Indication: TYPE 2 DIABETES MELLITUS
     Dosage: UNK (QW)
     Route: 058
     Dates: start: 20210404
  2. BISOPROLOL [Concomitant]
     Active Substance: BISOPROLOL
     Indication: HYPERTENSION
     Dosage: UNK (1X 2,5 (NO UNIT REPORTED) DAILY, START DATE: FOR MORE THEN 10 YEARS)
     Route: 065
  3. L?THYROXINE [LEVOTHYROXINE SODIUM] [Concomitant]
     Active Substance: LEVOTHYROXINE SODIUM
     Indication: HYPERTHYROIDISM
     Dosage: UNK (75 AND 100 IN ROTATION)
     Route: 065
     Dates: start: 2017
  4. TENSOFLUX [Concomitant]
     Active Substance: AMILORIDE\BENDROFLUMETHIAZIDE
     Indication: HYPERTENSION
     Dosage: UNK (1 (NO UNIT REPORTED) DAILY)
     Route: 065
     Dates: start: 202101, end: 20210516

REACTIONS (1)
  - Hyponatraemia [Recovered/Resolved]

NARRATIVE: CASE EVENT DATE: 20210512
